FAERS Safety Report 6986737-9 (Version None)
Quarter: 2010Q3

REPORT INFORMATION
  Report Type: 
  Country: None (occurrence: None)
  Receive Date: 20100915
  Receipt Date: 20090727
  Transmission Date: 20110219
  Serious: No
  Sender: FDA-Public Use
  Company Number: US-WYE-H10339909

PATIENT
  Sex: Female
  Weight: 90.8 kg

DRUGS (4)
  1. PRISTIQ [Suspect]
     Indication: DEPRESSION
     Route: 048
     Dates: start: 20090721
  2. COUMADIN [Concomitant]
  3. ESTRATEST [Concomitant]
  4. PROPAFENONE HCL [Concomitant]

REACTIONS (3)
  - DIARRHOEA [None]
  - MUSCULAR WEAKNESS [None]
  - MYDRIASIS [None]
